FAERS Safety Report 23092437 (Version 1)
Quarter: 2023Q4

REPORT INFORMATION
  Report Type: Spontaneous
  Country: IT (occurrence: IT)
  Receive Date: 20231021
  Receipt Date: 20231021
  Transmission Date: 20240109
  Serious: Yes (Hospitalization)
  Sender: FDA-Public Use
  Company Number: None

PATIENT
  Age: 75 Year
  Sex: Male

DRUGS (11)
  1. AMLODIPINE BESYLATE\OLMESARTAN MEDOXOMIL [Suspect]
     Active Substance: AMLODIPINE BESYLATE\OLMESARTAN MEDOXOMIL
     Indication: Hypertension
     Dosage: START OF THERAPY OFFICIALLY ATTRIBUTED DOSE: 40/10 MG 1 TABLET
  2. NEBIVOLOL [Suspect]
     Active Substance: NEBIVOLOL
     Indication: Hypertension
     Dosage: START OF THERAPY OFFICIALLY ATTRIBUTED DOSE: 5 MG 1 TABLET
  3. FENOFIBRATE [Concomitant]
     Active Substance: FENOFIBRATE
     Dosage: START OF THERAPY OFFICIALLY ATTRIBUTED
  4. PANTOPRAZOLE [Concomitant]
     Active Substance: PANTOPRAZOLE
     Dosage: START OF THERAPY OFFICIALLY ATTRIBUTED DOSE: 40 MG 1 TABLET
  5. JANUVIA [Concomitant]
     Active Substance: SITAGLIPTIN PHOSPHATE
     Dosage: START OF THERAPY OFFICIALLY ATTRIBUTED DOSE: 25 MG 1 TABLET X2
  6. TRAZODONE [Concomitant]
     Active Substance: TRAZODONE HYDROCHLORIDE
     Dosage: START OF THERAPY OFFICIALLY ATTRIBUTED DOSE: 50 MG 1/2 TABLET
  7. GABAPENTIN [Concomitant]
     Active Substance: GABAPENTIN
     Dosage: START OF THERAPY OFFICIALLY ATTRIBUTED DOSE: 100 MG 1 TABLET X 3
  8. ATORVASTATIN [Concomitant]
     Active Substance: ATORVASTATIN
     Dosage: START OF THERAPY OFFICIALLY ATTRIBUTED DOSE: 20 MG 1 TABLET
  9. LEVOTHYROXINE SODIUM [Concomitant]
     Active Substance: LEVOTHYROXINE SODIUM
     Dosage: START OF THERAPY OFFICIALLY ATTRIBUTED
  10. ASPIRIN [Concomitant]
     Active Substance: ASPIRIN
     Dosage: START OF THERAPY OFFICIALLY ATTRIBUTED
  11. TRIAZOLAM [Concomitant]
     Active Substance: TRIAZOLAM
     Dosage: START OF THERAPY OFFICIALLY ATTRIBUTED DOSE: 250 MG 2 TABLET

REACTIONS (2)
  - Blood pressure increased [Recovering/Resolving]
  - Drug ineffective [Recovering/Resolving]

NARRATIVE: CASE EVENT DATE: 20230225
